FAERS Safety Report 10223168 (Version 1)
Quarter: 2014Q2

REPORT INFORMATION
  Report Type: Spontaneous
  Country: US (occurrence: None)
  Receive Date: 20140605
  Receipt Date: 20140605
  Transmission Date: 20141212
  Serious: Yes (Hospitalization)
  Sender: FDA-Public Use
  Company Number: UNT-2014-001083

PATIENT
  Age: 76 Year
  Sex: Female
  Weight: 58 kg

DRUGS (3)
  1. TYVASO [Suspect]
     Indication: COR PULMONALE CHRONIC
     Dosage: 9 BREATHS
     Route: 055
     Dates: start: 20140207
  2. WARFARIN (WARFARIN0 [Concomitant]
  3. (TRACLEER) (BOSENTAN) [Concomitant]

REACTIONS (2)
  - Dyspnoea [None]
  - Pulmonary arterial hypertension [None]
